FAERS Safety Report 10583709 (Version 1)
Quarter: 2014Q4

REPORT INFORMATION
  Report Type: Spontaneous
  Country: ES (occurrence: None)
  Receive Date: 20141112
  Receipt Date: 20141112
  Transmission Date: 20150529
  Serious: Yes (Life-Threatening, Hospitalization)
  Sender: FDA-Public Use
  Company Number: IPC201410-000590

PATIENT
  Age: 27 Year
  Sex: Female

DRUGS (1)
  1. HYDROXYCHLOROQUINE SULFATE (HYDROXYCHLOROQUINE SULFATE) (HYDROXYCHLOROQUINE SULFATE) [Suspect]
     Active Substance: HYDROXYCHLOROQUINE SULFATE
     Indication: SYSTEMIC LUPUS ERYTHEMATOSUS

REACTIONS (12)
  - Lupus pancreatitis [None]
  - Fatigue [None]
  - Pain [None]
  - Alopecia [None]
  - Anaemia [None]
  - Systemic lupus erythematosus [None]
  - Drug withdrawal syndrome [None]
  - Pulmonary alveolar haemorrhage [None]
  - Weight decreased [None]
  - Vasculitis [None]
  - Acute respiratory failure [None]
  - Pulmonary haemorrhage [None]
